FAERS Safety Report 16545150 (Version 1)
Quarter: 2019Q3

REPORT INFORMATION
  Report Type: Spontaneous
  Country: US (occurrence: US)
  Receive Date: 20190708
  Receipt Date: 20190708
  Transmission Date: 20191004
  Serious: Yes (Hospitalization)
  Sender: FDA-Public Use
  Company Number: None

PATIENT
  Age: 72 Year
  Sex: Female
  Weight: 83.3 kg

DRUGS (15)
  1. NEXIUM [Concomitant]
     Active Substance: ESOMEPRAZOLE MAGNESIUM
  2. MEKTOVI [Suspect]
     Active Substance: BINIMETINIB
     Indication: PLASMA CELL MYELOMA
     Route: 048
     Dates: start: 20190703, end: 20190708
  3. VITAMIN D [Concomitant]
     Active Substance: VITAMIN D NOS
  4. DIFLUCAN [Concomitant]
     Active Substance: FLUCONAZOLE
  5. XANAX [Concomitant]
     Active Substance: ALPRAZOLAM
  6. ALLOPURINOL. [Concomitant]
     Active Substance: ALLOPURINOL
  7. ALDACTONE [Concomitant]
     Active Substance: SPIRONOLACTONE
  8. ZYRTEC [Concomitant]
     Active Substance: CETIRIZINE HYDROCHLORIDE
  9. DECADRON [Concomitant]
     Active Substance: DEXAMETHASONE
  10. MAGNESIUM ASPARTATE [Concomitant]
     Active Substance: MAGNESIUM ASPARTATE
  11. ACYCLOVIR. [Concomitant]
     Active Substance: ACYCLOVIR
  12. LASIX [Concomitant]
     Active Substance: FUROSEMIDE
  13. FOSAMAX [Concomitant]
     Active Substance: ALENDRONATE SODIUM
  14. ZANTAC [Concomitant]
     Active Substance: RANITIDINE HYDROCHLORIDE
  15. ADVIL [Concomitant]
     Active Substance: IBUPROFEN

REACTIONS (1)
  - Hospitalisation [None]

NARRATIVE: CASE EVENT DATE: 20190708
